FAERS Safety Report 15205731 (Version 2)
Quarter: 2018Q3

REPORT INFORMATION
  Report Type: Spontaneous
  Country: US (occurrence: US)
  Receive Date: 20180727
  Receipt Date: 20180818
  Transmission Date: 20181010
  Serious: Yes (Other)
  Sender: FDA-Public Use
  Company Number: US-009507513-1807USA008425

PATIENT
  Sex: Female

DRUGS (5)
  1. LIPITOR [Suspect]
     Active Substance: ATORVASTATIN CALCIUM
     Indication: BLOOD CHOLESTEROL ABNORMAL
     Dosage: UNK
  2. PREVNAR 13 [Suspect]
     Active Substance: PNEUMOCOCCAL 13-VALENT CONJUGATE VACCINE
     Indication: PROPHYLAXIS
  3. LIPITOR [Suspect]
     Active Substance: ATORVASTATIN CALCIUM
     Dosage: 80 MG, QD
  4. VYTORIN [Suspect]
     Active Substance: EZETIMIBE\SIMVASTATIN
     Dosage: UNK
  5. VYTORIN [Suspect]
     Active Substance: EZETIMIBE\SIMVASTATIN
     Dosage: 80 MG, QD

REACTIONS (13)
  - Retinal detachment [Unknown]
  - Cataract [Unknown]
  - Eye inflammation [Unknown]
  - Vision blurred [Unknown]
  - Hypersensitivity [Unknown]
  - Erythema [Unknown]
  - Diabetes mellitus [Not Recovered/Not Resolved]
  - Glaucoma [Unknown]
  - Muscle spasms [Unknown]
  - Adverse event [Unknown]
  - Macular hole [Unknown]
  - Vitreous floaters [Not Recovered/Not Resolved]
  - Inability to afford medication [Unknown]
